FAERS Safety Report 19451880 (Version 16)
Quarter: 2022Q1

REPORT INFORMATION
  Report Type: Spontaneous
  Country: GB (occurrence: GB)
  Receive Date: 20210623
  Receipt Date: 20220209
  Transmission Date: 20220423
  Serious: Yes (Hospitalization, Disabling, Other)
  Sender: FDA-Public Use
  Company Number: GB-002147023-PHHY2019GB207337

PATIENT
  Age: 8 Year
  Sex: Female
  Weight: 23.35 kg

DRUGS (63)
  1. LOPERAMIDE [Suspect]
     Active Substance: LOPERAMIDE
     Indication: Diarrhoea
     Dosage: 2 MILLIGRAM, FOUR TIMES/DAY
     Route: 065
  2. LOPERAMIDE [Suspect]
     Active Substance: LOPERAMIDE
     Indication: Prophylaxis
  3. ACETAMINOPHEN [Suspect]
     Active Substance: ACETAMINOPHEN
     Indication: Product used for unknown indication
     Dosage: ONCE A DAY (PM)
     Route: 048
  4. ACETAMINOPHEN [Suspect]
     Active Substance: ACETAMINOPHEN
     Dosage: PRN, QDS
     Route: 048
  5. RANITIDINE [Suspect]
     Active Substance: RANITIDINE
     Indication: Gastrooesophageal reflux disease
     Dosage: 1 DOSAGE FORM, ONCE A DAY
     Route: 048
  6. RANITIDINE [Suspect]
     Active Substance: RANITIDINE
     Dosage: ONCE A DAY  (UNK, BID)
     Route: 048
  7. RANITIDINE [Suspect]
     Active Substance: RANITIDINE
     Dosage: 50 MILLIGRAM, TWO TIMES A DAY
     Route: 048
     Dates: start: 20191018
  8. RANITIDINE [Suspect]
     Active Substance: RANITIDINE
     Dosage: TWO TIMES A DAY
     Route: 048
  9. AFINITOR [Suspect]
     Active Substance: EVEROLIMUS
     Indication: Brain stem glioma
     Dosage: 5 MILLIGRAM, ONCE A DAY
     Route: 048
     Dates: start: 20210207
  10. AFINITOR [Suspect]
     Active Substance: EVEROLIMUS
     Dosage: 5 MILLIGRAM
     Route: 048
  11. AFINITOR [Suspect]
     Active Substance: EVEROLIMUS
     Dosage: 5 MILLIGRAM
     Route: 048
     Dates: start: 20190717, end: 20200207
  12. AFINITOR [Suspect]
     Active Substance: EVEROLIMUS
     Dosage: 5 MILLIGRAM, ONCE A DAY
     Route: 048
     Dates: start: 20190717, end: 20200207
  13. AFINITOR [Suspect]
     Active Substance: EVEROLIMUS
     Dosage: 2.5 MILLIGRAM
     Route: 048
     Dates: start: 20190717, end: 20200207
  14. AFINITOR [Suspect]
     Active Substance: EVEROLIMUS
     Dosage: 2.5 MILLIGRAM
     Route: 048
     Dates: start: 20190717, end: 20191014
  15. AFINITOR [Suspect]
     Active Substance: EVEROLIMUS
     Dosage: 2.5 MILLIGRAM
     Route: 048
     Dates: start: 20190718, end: 20200207
  16. AFINITOR [Suspect]
     Active Substance: EVEROLIMUS
     Dosage: UNK UNK, ONCE A DAY
     Route: 048
     Dates: start: 20191001
  17. AFINITOR [Suspect]
     Active Substance: EVEROLIMUS
     Dosage: 2.5 MILLIGRAM, ONCE A DAY
     Route: 048
     Dates: start: 20200212
  18. AFINITOR [Suspect]
     Active Substance: EVEROLIMUS
     Dosage: 5 MILLIGRAM, ONCE A DAY
     Route: 048
     Dates: start: 20200212
  19. AFINITOR [Suspect]
     Active Substance: EVEROLIMUS
     Dosage: 2.5 MILLIGRAM, TWO TIMES A DAY
     Route: 048
     Dates: start: 20200213
  20. AFINITOR [Suspect]
     Active Substance: EVEROLIMUS
     Dosage: 2.5 MILLIGRAM, TWO TIMES A DAY
     Route: 048
     Dates: start: 20210212
  21. DEXAMETHASONE [Suspect]
     Active Substance: DEXAMETHASONE
     Indication: Product used for unknown indication
     Dosage: 8 MILLIGRAM, ONCE A DAY
     Route: 048
     Dates: start: 20191101, end: 20200221
  22. DEXAMETHASONE [Suspect]
     Active Substance: DEXAMETHASONE
     Dosage: 4.6 MILLIGRAM, ONCE A DAY
     Route: 048
     Dates: start: 20200207, end: 20200221
  23. DEXAMETHASONE [Suspect]
     Active Substance: DEXAMETHASONE
     Dosage: 3.5 MILLIGRAM, ONCE A DAY
     Route: 048
     Dates: start: 20200210
  24. DEXAMETHASONE [Suspect]
     Active Substance: DEXAMETHASONE
     Dosage: 3.5 MILLIGRAM, TWO TIMES A DAY
     Route: 048
     Dates: start: 20210210
  25. DEXAMETHASONE [Suspect]
     Active Substance: DEXAMETHASONE
     Dosage: 3.5 MILLIGRAM, ONCE A DAY
     Route: 048
     Dates: start: 20200212
  26. DEXAMETHASONE [Suspect]
     Active Substance: DEXAMETHASONE
     Dosage: 1.6 MILLIGRAM, ONCE A DAY
     Route: 048
     Dates: start: 20200215, end: 20200221
  27. DEXAMETHASONE [Suspect]
     Active Substance: DEXAMETHASONE
     Dosage: 1.6 MILLIGRAM
     Route: 048
     Dates: start: 20210215, end: 20210221
  28. EVEROLIMUS [Suspect]
     Active Substance: EVEROLIMUS
     Indication: Brain stem glioma
     Dosage: UNK
     Route: 065
  29. EVEROLIMUS [Suspect]
     Active Substance: EVEROLIMUS
     Dosage: 25 MILLIGRAM, ONCE A DAY
     Route: 048
     Dates: start: 20190717, end: 20191014
  30. EVEROLIMUS [Suspect]
     Active Substance: EVEROLIMUS
     Dosage: 5 MILLIGRAM
     Route: 048
     Dates: start: 20190717, end: 20200207
  31. EVEROLIMUS [Suspect]
     Active Substance: EVEROLIMUS
     Dosage: 2.5 MILLIGRAM, ONCE A DAY
     Route: 048
     Dates: start: 20191001
  32. EVEROLIMUS [Suspect]
     Active Substance: EVEROLIMUS
     Dosage: 2.5 MILLIGRAM, ONCE A DAY
     Route: 048
     Dates: start: 20191001
  33. EVEROLIMUS [Suspect]
     Active Substance: EVEROLIMUS
     Dosage: 2.5 MILLIGRAM
     Route: 048
     Dates: start: 20190718, end: 20200207
  34. EVEROLIMUS [Suspect]
     Active Substance: EVEROLIMUS
     Dosage: 5 MILLIGRAM, ONCE A DAY
     Route: 048
     Dates: start: 20200207
  35. EVEROLIMUS [Suspect]
     Active Substance: EVEROLIMUS
     Dosage: 5 MILLIGRAM, ONCE A DAY
     Route: 048
     Dates: start: 20200207
  36. EVEROLIMUS [Suspect]
     Active Substance: EVEROLIMUS
     Dosage: 2.5 MILLIGRAM, ONCE A DAY
     Route: 048
     Dates: start: 20210207
  37. EVEROLIMUS [Suspect]
     Active Substance: EVEROLIMUS
     Dosage: 5 MILLIGRAM, ONCE A DAY
     Route: 048
     Dates: start: 20210207
  38. EVEROLIMUS [Suspect]
     Active Substance: EVEROLIMUS
     Dosage: 2.5 MILLIGRAM, ONCE A DAY
     Route: 048
     Dates: start: 20210207
  39. EVEROLIMUS [Suspect]
     Active Substance: EVEROLIMUS
     Dosage: 5 MILLIGRAM, ONCE A DAY
     Route: 048
     Dates: start: 20210207
  40. EVEROLIMUS [Suspect]
     Active Substance: EVEROLIMUS
     Dosage: 2.5 MILLIGRAM, ONCE A DAY
     Route: 048
     Dates: start: 20200213
  41. EVEROLIMUS [Suspect]
     Active Substance: EVEROLIMUS
     Dosage: 5 MILLIGRAM, ONCE A DAY
     Route: 048
     Dates: start: 20200212
  42. EVEROLIMUS [Suspect]
     Active Substance: EVEROLIMUS
     Dosage: 2.5 MILLIGRAM, ONCE A DAY
     Route: 048
     Dates: start: 20200212
  43. LANSOPRAZOLE [Suspect]
     Active Substance: LANSOPRAZOLE
     Indication: Product used for unknown indication
     Dosage: UNK
     Route: 065
  44. VANDETANIB [Suspect]
     Active Substance: VANDETANIB
     Indication: Brain stem glioma
     Dosage: UNK
     Route: 048
  45. VANDETANIB [Suspect]
     Active Substance: VANDETANIB
     Dosage: 100 MILLIGRAM, TWO TIMES A DAY
     Route: 048
     Dates: start: 20191009, end: 20191014
  46. VANDETANIB [Suspect]
     Active Substance: VANDETANIB
     Dosage: 100 MILLIGRAM, TWO TIMES A DAY
     Route: 048
     Dates: start: 20191018, end: 20200207
  47. VANDETANIB [Suspect]
     Active Substance: VANDETANIB
     Dosage: 54 MILLIGRAM, TWO TIMES A DAY
     Route: 048
     Dates: start: 20200212, end: 20200302
  48. VANDETANIB [Suspect]
     Active Substance: VANDETANIB
     Dosage: 100 MILLIGRAM, ONCE A DAY
     Route: 048
     Dates: start: 20200212, end: 20200302
  49. VANDETANIB [Suspect]
     Active Substance: VANDETANIB
     Dosage: 54 MILLIGRAM/SQ. METER
     Route: 048
     Dates: start: 20200212, end: 20200302
  50. VANDETANIB [Suspect]
     Active Substance: VANDETANIB
     Dosage: 65 MILLIGRAM/SQ. METER, ONCE A DAY
     Route: 048
     Dates: start: 20200316, end: 20200420
  51. VANDETANIB [Suspect]
     Active Substance: VANDETANIB
     Dosage: 65 MILLIGRAM/SQ. METER
     Route: 048
     Dates: start: 20200316, end: 20200420
  52. COTRIMOXAZOLE [Concomitant]
     Active Substance: SULFAMETHOXAZOLE\TRIMETHOPRIM
     Indication: Product used for unknown indication
     Dosage: 360 MILLIGRAM, TWO TIMES A DAY
     Route: 048
  53. COTRIMOXAZOLE [Concomitant]
     Active Substance: SULFAMETHOXAZOLE\TRIMETHOPRIM
     Dosage: 720 MILLIGRAM, ONCE A DAY
     Route: 048
  54. COTRIMOXAZOLE [Concomitant]
     Active Substance: SULFAMETHOXAZOLE\TRIMETHOPRIM
     Dosage: 360 MILLIGRAM
     Route: 065
  55. COTRIMOXAZOLE [Concomitant]
     Active Substance: SULFAMETHOXAZOLE\TRIMETHOPRIM
     Dosage: 360 MILLIGRAM
     Route: 065
  56. DEXAMETHASONE [Concomitant]
     Active Substance: DEXAMETHASONE
     Indication: Product used for unknown indication
     Dosage: UNK
     Route: 065
  57. DEXAMETHASONE [Concomitant]
     Active Substance: DEXAMETHASONE
     Dosage: 4 MILLIGRAM, BID
     Route: 065
     Dates: start: 20191101, end: 20200221
  58. DEXAMETHASONE [Concomitant]
     Active Substance: DEXAMETHASONE
     Dosage: 9.2 MILLIGRAM, ONCE A DAY
     Route: 048
     Dates: start: 20200207
  59. DEXAMETHASONE [Concomitant]
     Active Substance: DEXAMETHASONE
     Dosage: 7 MILLIGRAM, ONCE A DAY
     Route: 048
     Dates: start: 20200210
  60. DEXAMETHASONE [Concomitant]
     Active Substance: DEXAMETHASONE
     Dosage: 3.5 MILLIGRAM, ONCE A DAY
     Route: 048
     Dates: start: 20200212, end: 20200221
  61. DEXAMETHASONE [Concomitant]
     Active Substance: DEXAMETHASONE
     Dosage: 0.5 MILLIGRAM, UNK
     Route: 065
     Dates: start: 20200215, end: 20200221
  62. DEXAMETHASONE [Concomitant]
     Active Substance: DEXAMETHASONE
     Dosage: 5 MILLIGRAM
     Route: 048
     Dates: start: 20200221
  63. RANITIDINE [Concomitant]
     Active Substance: RANITIDINE
     Indication: Product used for unknown indication
     Dosage: 50 MILLIGRAM, TWO TIMES A DAY
     Route: 065
     Dates: start: 20191018

REACTIONS (28)
  - Blood creatinine increased [Recovered/Resolved]
  - Stomatitis [Recovered/Resolved]
  - Mucosal inflammation [Recovered/Resolved]
  - Gastrooesophageal reflux disease [Recovered/Resolved]
  - Blood cholesterol increased [Recovered/Resolved]
  - Alanine aminotransferase increased [Recovered/Resolved]
  - Myoclonus [Recovered/Resolved]
  - Flatulence [Recovered/Resolved]
  - Ocular hyperaemia [Recovered/Resolved]
  - Hypophosphataemia [Recovered/Resolved]
  - Abdominal distension [Recovered/Resolved]
  - Electrocardiogram QT prolonged [Recovered/Resolved]
  - Hypertension [Recovered/Resolved]
  - Reflux gastritis [Recovered/Resolved]
  - Facial paralysis [Recovered/Resolved]
  - Neutrophil count decreased [Recovered/Resolved]
  - Ataxia [Recovered/Resolved]
  - Hemiparesis [Recovered/Resolved]
  - Blood triglycerides increased [Not Recovered/Not Resolved]
  - Lymphocyte count decreased [Not Recovered/Not Resolved]
  - Hypophagia [Not Recovered/Not Resolved]
  - White blood cell count decreased [Not Recovered/Not Resolved]
  - Malignant neoplasm progression [Unknown]
  - Brain stem glioma [Unknown]
  - Disease progression [Unknown]
  - Product use in unapproved indication [Not Recovered/Not Resolved]
  - Off label use [Not Recovered/Not Resolved]
  - Medication error [Unknown]

NARRATIVE: CASE EVENT DATE: 20190111
